FAERS Safety Report 7451029-0 (Version None)
Quarter: 2011Q2

REPORT INFORMATION
  Report Type: 
  Country: None (occurrence: None)
  Receive Date: 20110502
  Receipt Date: 20110426
  Transmission Date: 20111010
  Serious: Yes (Hospitalization)
  Sender: FDA-Public Use
  Company Number: ES-ROCHE-773591

PATIENT
  Age: 67 Year
  Sex: Male

DRUGS (4)
  1. CISPLATIN [Suspect]
     Indication: METASTATIC GASTRIC CANCER
     Route: 065
  2. CAPECITABINE [Suspect]
     Dosage: MAINTAINENCE DOSE
     Route: 065
  3. CAPECITABINE [Suspect]
     Dosage: DOSE REDUCED BY 88%
     Route: 065
  4. CAPECITABINE [Suspect]
     Indication: METASTATIC GASTRIC CANCER
     Dosage: LOADING DOSE
     Route: 065

REACTIONS (3)
  - DEHYDRATION [None]
  - RENAL FAILURE [None]
  - GASTROINTESTINAL TOXICITY [None]
